FAERS Safety Report 6449232-1 (Version None)
Quarter: 2009Q4

REPORT INFORMATION
  Report Type: 
  Country: None (occurrence: None)
  Receive Date: 20091120
  Receipt Date: 20091112
  Transmission Date: 20100525
  Serious: Yes (Other)
  Sender: FDA-Public Use
  Company Number: JP-BRISTOL-MYERS SQUIBB COMPANY-14833537

PATIENT
  Age: 55 Year
  Sex: Male
  Weight: 74 kg

DRUGS (10)
  1. PARAPLATIN [Suspect]
     Indication: THYMOMA
     Route: 041
     Dates: start: 20060511, end: 20060605
  2. TAXOL [Suspect]
     Indication: THYMOMA
     Route: 041
     Dates: start: 20060511, end: 20060605
  3. BRIPLATIN [Suspect]
     Indication: THYMOMA
     Dates: start: 20060303, end: 20060303
  4. PREDNISOLONE [Concomitant]
     Indication: MYASTHENIA GRAVIS
     Dosage: FORM:TAB 30MG EVERY OTHER DAY
     Route: 048
     Dates: start: 19950201
  5. SULFAMETHOXAZOLE AND TRIMETHOPRIM [Concomitant]
     Dosage: TAB 1 DF = 4TABLET 4TABLET/DAY TWICE WEEKLY
     Route: 048
     Dates: start: 19950201
  6. AMBENONIUM CHLORIDE [Concomitant]
     Indication: MYASTHENIA GRAVIS
     Dosage: TAB 10X2MG/DAY:FEB95
     Route: 048
     Dates: start: 19950101
  7. HERBAL MIXTURE [Concomitant]
     Indication: BENIGN PROSTATIC HYPERPLASIA
     Dosage: 1 DF = 3 TABS 3X3 TABS/DAY FORM:TABS
     Route: 048
     Dates: start: 19950201
  8. TACROLIMUS [Concomitant]
     Indication: MYASTHENIA GRAVIS
     Dosage: TACROLIMUS HYDRATE ALSO TAKEN JAN05
     Route: 048
     Dates: start: 19950201
  9. BROTIZOLAM [Concomitant]
     Indication: INSOMNIA
     Dosage: TAB
     Route: 048
     Dates: start: 19950201
  10. FAMOTIDINE [Concomitant]
     Route: 048
     Dates: start: 19950201

REACTIONS (1)
  - POLYMYOSITIS [None]
